FAERS Safety Report 19769633 (Version 1)
Quarter: 2021Q3

REPORT INFORMATION
  Report Type: Spontaneous
  Country: US (occurrence: US)
  Receive Date: 20210831
  Receipt Date: 20210831
  Transmission Date: 20211014
  Serious: Yes (Hospitalization)
  Sender: FDA-Public Use
  Company Number: US-PFIZER INC-202101056404

PATIENT
  Age: 3 Year
  Sex: Male
  Weight: 17.7 kg

DRUGS (1)
  1. XELJANZ [Suspect]
     Active Substance: TOFACITINIB CITRATE
     Dosage: 3.2 MG/ML, 2X/DAY
     Route: 048

REACTIONS (2)
  - Juvenile idiopathic arthritis [Unknown]
  - Pulmonary hypertension [Unknown]
